FAERS Safety Report 4286708-X (Version None)
Quarter: 2004Q1

REPORT INFORMATION
  Report Type: 
  Country: None (occurrence: None)
  Receive Date: 20040204
  Receipt Date: 20040130
  Transmission Date: 20041129
  Serious: Yes (Other)
  Sender: FDA-Public Use
  Company Number: 200410347GDS

PATIENT
  Sex: Female

DRUGS (1)
  1. ACTIRA (MOXIFLOXACIN HYDROCHLORIDE) [Suspect]
     Indication: CONGENITAL BRONCHIECTASIS

REACTIONS (1)
  - EXTRASYSTOLES [None]
